FAERS Safety Report 18265677 (Version 1)
Quarter: 2020Q3

REPORT INFORMATION
  Report Type: Spontaneous
  Country: CA (occurrence: CA)
  Receive Date: 20200914
  Receipt Date: 20200914
  Transmission Date: 20201103
  Serious: Yes (Death, Other)
  Sender: FDA-Public Use
  Company Number: CA-HLS-202001473

PATIENT
  Age: 35 Year
  Sex: Female

DRUGS (1)
  1. CLOZAPINE. [Suspect]
     Active Substance: CLOZAPINE
     Indication: PRODUCT USED FOR UNKNOWN INDICATION
     Route: 065

REACTIONS (9)
  - White blood cell count increased [Unknown]
  - Death [Fatal]
  - Myocarditis [Unknown]
  - Neutrophil count increased [Unknown]
  - Pyrexia [Unknown]
  - Rash [Unknown]
  - Brain natriuretic peptide increased [Unknown]
  - Red blood cell sedimentation rate increased [Unknown]
  - Troponin increased [Unknown]
